FAERS Safety Report 6788888-0 (Version None)
Quarter: 2010Q2

REPORT INFORMATION
  Report Type: 
  Country: None (occurrence: None)
  Receive Date: 20100623
  Receipt Date: 20080610
  Transmission Date: 20101027
  Serious: No
  Sender: FDA-Public Use
  Company Number: US-PFIZER INC-2008049610

PATIENT
  Sex: Female

DRUGS (2)
  1. PROVERA [Suspect]
     Indication: UTERINE HAEMORRHAGE
     Route: 048
     Dates: start: 20080601
  2. TOPAMAX [Concomitant]

REACTIONS (2)
  - ARTHRALGIA [None]
  - GROIN PAIN [None]
